FAERS Safety Report 18918930 (Version 1)
Quarter: 2021Q1

REPORT INFORMATION
  Report Type: Spontaneous
  Country: IT (occurrence: IT)
  Receive Date: 20210220
  Receipt Date: 20210220
  Transmission Date: 20210420
  Serious: Yes (Death, Life-Threatening, Hospitalization, Other)
  Sender: FDA-Public Use
  Company Number: IT-ACCORD-217604

PATIENT
  Age: 57 Year
  Sex: Male

DRUGS (9)
  1. PREDNISONE. [Suspect]
     Active Substance: PREDNISONE
     Indication: PRODUCT USED FOR UNKNOWN INDICATION
  2. ERGOCALCIFEROL. [Concomitant]
     Active Substance: ERGOCALCIFEROL
  3. FUROSEMIDE. [Concomitant]
     Active Substance: FUROSEMIDE
  4. BISOPROLOL [Concomitant]
     Active Substance: BISOPROLOL
  5. ATORVASTATIN [Concomitant]
     Active Substance: ATORVASTATIN
  6. CANRENOIC ACID [Concomitant]
     Active Substance: CANRENOIC ACID
  7. MYCOPHENOLATE MOFETIL/MYCOPHENOLATE SODIUM/MYCOPHENOLIC ACID [Suspect]
     Active Substance: MYCOPHENOLIC ACID
     Indication: PRODUCT USED FOR UNKNOWN INDICATION
  8. ALENDRONATE SODIUM/ALENDRONIC ACID [Concomitant]
     Active Substance: ALENDRONATE SODIUM
  9. FEBUXOSTAT. [Concomitant]
     Active Substance: FEBUXOSTAT

REACTIONS (5)
  - Coma [Fatal]
  - Encephalitis [Fatal]
  - Acute respiratory distress syndrome [Fatal]
  - West Nile viral infection [Fatal]
  - Pneumonia aspiration [Fatal]
